FAERS Safety Report 12755048 (Version 1)
Quarter: 2016Q3

REPORT INFORMATION
  Report Type: Spontaneous
  Country: NO (occurrence: NO)
  Receive Date: 20160916
  Receipt Date: 20160916
  Transmission Date: 20161109
  Serious: Yes (Death)
  Sender: FDA-Public Use
  Company Number: NO-PFIZER INC-2016428609

PATIENT
  Sex: Female

DRUGS (3)
  1. PIPERACILLIN/TAZOBACTAM [Suspect]
     Active Substance: PIPERACILLIN SODIUM\TAZOBACTAM SODIUM
     Indication: BURN INFECTION
     Dosage: UNK
  2. MEROPENEM. [Suspect]
     Active Substance: MEROPENEM
     Indication: BURN INFECTION
     Dosage: UNK
  3. VANCOMYCIN HCL [Suspect]
     Active Substance: VANCOMYCIN HYDROCHLORIDE
     Indication: BURN INFECTION
     Dosage: UNK

REACTIONS (9)
  - Multiple organ dysfunction syndrome [None]
  - Staphylococcus test negative [None]
  - Fatigue [None]
  - Drug resistance [Fatal]
  - Anaemia [None]
  - Hypovolaemia [None]
  - Hypoxia [None]
  - Bacterial infection [None]
  - Septic shock [None]
